FAERS Safety Report 4828571-1 (Version None)
Quarter: 2005Q4

REPORT INFORMATION
  Report Type: 
  Country: None (occurrence: None)
  Receive Date: 20051115
  Receipt Date: 20021101
  Transmission Date: 20060501
  Serious: Yes (Hospitalization)
  Sender: FDA-Public Use
  Company Number: US-BRISTOL-MYERS SQUIBB COMPANY-13172085

PATIENT

DRUGS (1)
  1. TEQUIN [Suspect]
     Indication: SINUSITIS

REACTIONS (1)
  - HYPOGLYCAEMIA [None]
